FAERS Safety Report 18906202 (Version 1)
Quarter: 2021Q1

REPORT INFORMATION
  Report Type: Report from Study
  Country: US (occurrence: US)
  Receive Date: 20210217
  Receipt Date: 20210217
  Transmission Date: 20210420
  Serious: Yes (Other)
  Sender: FDA-Public Use
  Company Number: US-GILEAD-2020-0510158

PATIENT
  Age: 34 Year
  Sex: Female

DRUGS (29)
  1. ADVAIR HFA [Concomitant]
     Active Substance: FLUTICASONE PROPIONATE\SALMETEROL XINAFOATE
  2. CALCIUM CARBONATE. [Concomitant]
     Active Substance: CALCIUM CARBONATE
  3. LEVALBUTEROL HCL [Concomitant]
     Active Substance: LEVALBUTEROL HYDROCHLORIDE
  4. QNASL [Concomitant]
     Active Substance: BECLOMETHASONE DIPROPIONATE
  5. CREON [Concomitant]
     Active Substance: PANCRELIPASE AMYLASE\PANCRELIPASE LIPASE\PANCRELIPASE PROTEASE
  6. DAILY?VITE [Concomitant]
  7. SYMDEKO [Concomitant]
     Active Substance: IVACAFTOR\TEZACAFTOR
  8. CEFUROXIME. [Concomitant]
     Active Substance: CEFUROXIME
  9. VITAMIN B COMPLEX [Concomitant]
     Active Substance: CYANOCOBALAMIN\DEXPANTHENOL\NIACINAMIDE\PYRIDOXINE HYDROCHLORIDE\RIBOFLAVIN 5^-PHOSPHATE SODIUM\THIAMINE HYDROCHLORIDE\VITAMIN B COMPLEX
  10. ORKAMBI [Concomitant]
     Active Substance: IVACAFTOR\LUMACAFTOR
  11. ALLEGRA [Concomitant]
     Active Substance: FEXOFENADINE HYDROCHLORIDE
  12. SUMATRIPTAN SUCCINATE. [Concomitant]
     Active Substance: SUMATRIPTAN SUCCINATE
  13. VITAMIN C [Concomitant]
     Active Substance: ASCORBIC ACID
  14. IRON [Concomitant]
     Active Substance: IRON
  15. FLOVENT [Concomitant]
     Active Substance: FLUTICASONE PROPIONATE
  16. TURMERIC [CURCUMA LONGA RHIZOME] [Concomitant]
     Active Substance: HERBALS\TURMERIC
  17. VITAMIN D3 [Concomitant]
     Active Substance: CHOLECALCIFEROL
  18. PULMOZYME [Concomitant]
     Active Substance: DORNASE ALFA
  19. DUPIXENT [Concomitant]
     Active Substance: DUPILUMAB
  20. TRIKAFTA [Concomitant]
     Active Substance: ELEXACAFTOR\IVACAFTOR\TEZACAFTOR
  21. AZITHROMYCIN ANHYDROUS. [Concomitant]
     Active Substance: AZITHROMYCIN ANHYDROUS
  22. DOXYCYCLINE MONOHYDRATE [Concomitant]
     Active Substance: DOXYCYCLINE
  23. MAGNESIUM [Concomitant]
     Active Substance: MAGNESIUM
  24. PEPCID AC [Concomitant]
     Active Substance: FAMOTIDINE
  25. AZTREONAM LYSINE [Suspect]
     Active Substance: AZTREONAM LYSINE
     Indication: CYSTIC FIBROSIS
     Dosage: 75 MG, TID FOR 28 DAYS ON AND 28 DAYS OFF
     Route: 055
  26. TOBI [Concomitant]
     Active Substance: TOBRAMYCIN
     Dosage: UNK
     Route: 042
  27. NAC [ACETYLCYSTEINE] [Concomitant]
     Active Substance: ACETYLCYSTEINE
  28. PROBIOTICS NOS [Concomitant]
     Active Substance: PROBIOTICS NOS
  29. VENLAFAXINE HYDROCHLORIDE. [Concomitant]
     Active Substance: VENLAFAXINE HYDROCHLORIDE

REACTIONS (8)
  - Dyspnoea [Unknown]
  - Illness [Unknown]
  - Infection [Unknown]
  - Cystic fibrosis [Unknown]
  - Infection [Not Recovered/Not Resolved]
  - Neuropathy peripheral [Unknown]
  - Tendonitis [Unknown]
  - Cough [Unknown]

NARRATIVE: CASE EVENT DATE: 202012
